FAERS Safety Report 4477030-7 (Version None)
Quarter: 2004Q4

REPORT INFORMATION
  Report Type: 
  Country: None (occurrence: None)
  Receive Date: 20041018
  Receipt Date: 20041005
  Transmission Date: 20050328
  Serious: Yes (Other)
  Sender: FDA-Public Use
  Company Number: 200413107JP

PATIENT
  Age: 44 Year
  Sex: Male

DRUGS (3)
  1. ALLEGRA [Suspect]
     Indication: ECZEMA
     Dosage: DOSE: 2 TABLETS
  2. ABOCOAT [Concomitant]
     Indication: ECZEMA
  3. ANTEBATE [Concomitant]
     Indication: ECZEMA

REACTIONS (2)
  - GAMMA-GLUTAMYLTRANSFERASE INCREASED [None]
  - LIVER FUNCTION TEST ABNORMAL [None]
